FAERS Safety Report 8899404 (Version 1)
Quarter: 2012Q4

REPORT INFORMATION
  Report Type: 
  Country: GB (occurrence: GB)
  Receive Date: 20121109
  Receipt Date: 20121109
  Transmission Date: 20130627
  Serious: Yes (Death, Other)
  Sender: FDA-Public Use
  Company Number: GB-PFIZER INC-2012190264

PATIENT
  Age: 59 Year
  Sex: Male

DRUGS (6)
  1. MYLOTARG [Suspect]
     Indication: ACUTE MYELOID LEUKEMIA
     Dosage: 3 mg/m2, UNK
     Dates: start: 20110507, end: 20110516
  2. MYLOTARG [Suspect]
     Indication: MYELODYSPLASTIC SYNDROME
  3. CYTARABINE [Suspect]
     Indication: ACUTE MYELOID LEUKEMIA
     Dosage: UNK
     Dates: start: 20110507, end: 20110516
  4. CYTARABINE [Suspect]
     Indication: MYELODYSPLASTIC SYNDROME
  5. DAUNORUBICIN [Suspect]
     Indication: ACUTE MYELOID LEUKEMIA
     Dosage: UNK
     Dates: start: 20110507, end: 20110516
  6. DAUNORUBICIN [Suspect]
     Indication: MYELODYSPLASTIC SYNDROME

REACTIONS (1)
  - Multi-organ failure [Fatal]
